FAERS Safety Report 7048563-4 (Version None)
Quarter: 2010Q4

REPORT INFORMATION
  Report Type: 
  Country: None (occurrence: None)
  Receive Date: 20101008
  Receipt Date: 20100924
  Transmission Date: 20110411
  Serious: Yes (Hospitalization)
  Sender: FDA-Public Use
  Company Number: 018527

PATIENT
  Sex: Male
  Weight: 178 kg

DRUGS (8)
  1. CIMZIA [Suspect]
     Indication: CROHN'S DISEASE
     Dosage: (200 MG 1X/2 WEEKS SUBCUTANEOUS)
     Route: 058
     Dates: start: 20100902
  2. PREDNISONE [Concomitant]
  3. IMURAN [Concomitant]
  4. ASPIRIN [Concomitant]
  5. SPIRIVA [Concomitant]
  6. AMLODIPINE [Concomitant]
  7. PREVACID [Concomitant]
  8. VESICARE [Concomitant]

REACTIONS (3)
  - CONFUSIONAL STATE [None]
  - HERPES ZOSTER [None]
  - HERPES ZOSTER OPHTHALMIC [None]
